FAERS Safety Report 10383881 (Version 1)
Quarter: 2014Q3

REPORT INFORMATION
  Report Type: Spontaneous
  Country: US (occurrence: None)
  Receive Date: 20140813
  Receipt Date: 20140813
  Transmission Date: 20150326
  Serious: Yes (Other)
  Sender: FDA-Public Use
  Company Number: None

PATIENT

DRUGS (1)
  1. PHYTONADIONE. [Suspect]
     Active Substance: PHYTONADIONE

REACTIONS (2)
  - Limb injury [None]
  - Injury associated with device [None]

NARRATIVE: CASE EVENT DATE: 20140407
